FAERS Safety Report 17075247 (Version 1)
Quarter: 2019Q4

REPORT INFORMATION
  Report Type: Spontaneous
  Country: BE (occurrence: BE)
  Receive Date: 20191126
  Receipt Date: 20191126
  Transmission Date: 20200122
  Serious: Yes (Hospitalization)
  Sender: FDA-Public Use
  Company Number: BE-MYLANLABS-2019M1114802

PATIENT
  Age: 48 Year
  Sex: Male

DRUGS (5)
  1. TEMOZOLOMIDE. [Suspect]
     Active Substance: TEMOZOLOMIDE
     Indication: ANAPLASTIC ASTROCYTOMA
     Route: 048
  2. VALPROIC ACID. [Interacting]
     Active Substance: VALPROIC ACID
     Indication: EPILEPSY
     Route: 065
  3. MEROPENEM. [Interacting]
     Active Substance: MEROPENEM
     Indication: CAMPYLOBACTER INFECTION
  4. MEROPENEM. [Interacting]
     Active Substance: MEROPENEM
     Indication: MENINGITIS BACTERIAL
     Dosage: ADMINISTERED THREE TIMES A DAY FOR 3H
     Route: 042
  5. LEVETIRACETAM. [Concomitant]
     Active Substance: LEVETIRACETAM
     Indication: EPILEPSY
     Route: 065

REACTIONS (4)
  - Drug interaction [Unknown]
  - Meningitis bacterial [Recovering/Resolving]
  - Campylobacter infection [Recovering/Resolving]
  - Drug level decreased [Unknown]
